FAERS Safety Report 13259731 (Version 6)
Quarter: 2017Q1

REPORT INFORMATION
  Report Type: Report from Study
  Country: US (occurrence: US)
  Receive Date: 20170222
  Receipt Date: 20170328
  Transmission Date: 20170428
  Serious: Yes (Other)
  Sender: FDA-Public Use
  Company Number: US-PFIZER INC-2017038925

PATIENT
  Age: 72 Year
  Sex: Female

DRUGS (2)
  1. IBRANCE [Suspect]
     Active Substance: PALBOCICLIB
     Indication: BREAST CANCER
     Dosage: 100 MG, DAILY
     Route: 048
     Dates: start: 20170124, end: 20170220
  2. IBRANCE [Suspect]
     Active Substance: PALBOCICLIB
     Dosage: 100 MG, DAILY
     Route: 048
     Dates: start: 20170301, end: 20170321

REACTIONS (10)
  - Neutropenia [Not Recovered/Not Resolved]
  - Throat irritation [Unknown]
  - Neuropathy peripheral [Unknown]
  - Nausea [Unknown]
  - Abdominal distension [Unknown]
  - Fatigue [Not Recovered/Not Resolved]
  - Bone marrow failure [Unknown]
  - Vomiting [Unknown]
  - Neoplasm progression [Unknown]
  - Productive cough [Unknown]

NARRATIVE: CASE EVENT DATE: 2017
